FAERS Safety Report 21040792 (Version 1)
Quarter: 2022Q3

REPORT INFORMATION
  Report Type: Spontaneous
  Country: US (occurrence: US)
  Receive Date: 20220704
  Receipt Date: 20220704
  Transmission Date: 20221026
  Serious: No
  Sender: FDA-Public Use
  Company Number: US-AMNEAL PHARMACEUTICALS-2022-AMRX-01225

PATIENT
  Age: 23 Year
  Sex: Female
  Weight: 90.703 kg

DRUGS (2)
  1. ELURYNG [Suspect]
     Active Substance: ETHINYL ESTRADIOL\ETONOGESTREL
     Indication: Product used for unknown indication
     Dosage: 0.12 MG/ DAY ONE RING FOR A MONTH
     Route: 067
     Dates: start: 202204, end: 202204
  2. LEXAPRO [Concomitant]
     Active Substance: ESCITALOPRAM OXALATE
     Indication: Depression
     Dosage: 20 MILLIGRAM, 1 /DAY
     Route: 065

REACTIONS (3)
  - Menstruation irregular [Unknown]
  - Dysmenorrhoea [Unknown]
  - Device breakage [Unknown]

NARRATIVE: CASE EVENT DATE: 20220401
